FAERS Safety Report 9773449 (Version 2)
Quarter: 2014Q1

REPORT INFORMATION
  Report Type: Spontaneous
  Country: GB (occurrence: GB)
  Receive Date: 20131219
  Receipt Date: 20140207
  Transmission Date: 20141002
  Serious: Yes (Death, Hospitalization, Disabling)
  Sender: FDA-Public Use
  Company Number: GB-WATSON-2013-23105

PATIENT
  Age: 71 Year
  Sex: Female
  Weight: 70 kg

DRUGS (5)
  1. METOPROLOL TARTRATE (UNKNOWN) [Suspect]
     Indication: ATRIAL FIBRILLATION
     Dosage: 25 MG, UNKNOWN
     Route: 048
     Dates: start: 20130517, end: 20130517
  2. AMIODARONE (UNKNOWN) [Interacting]
     Indication: PRODUCT USED FOR UNKNOWN INDICATION
     Dosage: 200 MG, DAILY
     Route: 065
  3. LISINOPRIL [Concomitant]
     Indication: PRODUCT USED FOR UNKNOWN INDICATION
     Dosage: 10 MG, BID
     Route: 065
  4. BUMETANIDE [Concomitant]
     Indication: PRODUCT USED FOR UNKNOWN INDICATION
     Dosage: 1 MG, BID
     Route: 065
  5. LEVOTHYROXINE [Concomitant]
     Indication: PRODUCT USED FOR UNKNOWN INDICATION
     Dosage: 25 ?G, DAILY
     Route: 065

REACTIONS (20)
  - Renal failure [Fatal]
  - Circulatory collapse [Recovered/Resolved]
  - Hypoxia [Not Recovered/Not Resolved]
  - Cyanosis [Recovered/Resolved]
  - Dyspnoea [Recovered/Resolved]
  - Loss of consciousness [Recovered/Resolved]
  - Blood pressure immeasurable [Recovered/Resolved]
  - Hyperhidrosis [Unknown]
  - Cold sweat [Unknown]
  - Hypotension [Unknown]
  - Cardiogenic shock [Unknown]
  - Lactic acidosis [Unknown]
  - Fluid imbalance [Unknown]
  - Ejection fraction decreased [Unknown]
  - Activities of daily living impaired [Unknown]
  - Feeling cold [Unknown]
  - Shock [Unknown]
  - Pulse abnormal [Not Recovered/Not Resolved]
  - Heart rate abnormal [Not Recovered/Not Resolved]
  - Labelled drug-drug interaction medication error [Unknown]
